FAERS Safety Report 24857756 (Version 1)
Quarter: 2025Q1

REPORT INFORMATION
  Report Type: Spontaneous
  Country: US (occurrence: None)
  Receive Date: 20250117
  Receipt Date: 20250117
  Transmission Date: 20250408
  Serious: Yes (Hospitalization)
  Sender: FDA-CTU
  Company Number: None

PATIENT
  Age: 73 Year
  Sex: Male
  Weight: 54 kg

DRUGS (7)
  1. NEOSTIGMINE METHYLSULFATE [Suspect]
     Active Substance: NEOSTIGMINE METHYLSULFATE
     Indication: Wound infection staphylococcal
     Dosage: 500 MG DAILY INTRAVENOUS DRIP
     Route: 041
     Dates: start: 20240919
  2. ATORVISTATIN [Concomitant]
  3. CARVEDILOL [Concomitant]
     Active Substance: CARVEDILOL
  4. CLOPIDOGREL [Concomitant]
     Active Substance: CLOPIDOGREL BISULFATE
  5. PANTOPRAZOLE [Concomitant]
     Active Substance: PANTOPRAZOLE
  6. TACRILIMUS [Concomitant]
  7. MYCOPHENOLIC ACID [Concomitant]
     Active Substance: MYCOPHENOLIC ACID

REACTIONS (1)
  - Seizure [None]

NARRATIVE: CASE EVENT DATE: 20241008
